FAERS Safety Report 15193446 (Version 1)
Quarter: 2018Q3

REPORT INFORMATION
  Report Type: Spontaneous
  Country: US (occurrence: US)
  Receive Date: 20180626
  Receipt Date: 20180626
  Transmission Date: 20181010
  Serious: Yes (Other)
  Sender: FDA-Public Use
  Company Number: None

PATIENT
  Age: 36 Year
  Sex: Male

DRUGS (1)
  1. CBD OIL CRYSTAL ISOLATE 1500MG (AND GUMMIES) [Suspect]
     Active Substance: CANNABIDIOL\CANNABIS SATIVA SEED OIL
     Route: 048
     Dates: start: 20180404, end: 20180404

REACTIONS (7)
  - Asthenia [None]
  - Hallucination [None]
  - Disorientation [None]
  - Paranoia [None]
  - Heart rate decreased [None]
  - Product formulation issue [None]
  - Product counterfeit [None]

NARRATIVE: CASE EVENT DATE: 20180405
